FAERS Safety Report 17561786 (Version 1)
Quarter: 2020Q1

REPORT INFORMATION
  Report Type: Spontaneous
  Country: FR (occurrence: FR)
  Receive Date: 20200319
  Receipt Date: 20200319
  Transmission Date: 20200409
  Serious: Yes (Other)
  Sender: FDA-Public Use
  Company Number: FR-TEVA-2020-FR-1207747

PATIENT
  Age: 46 Year
  Sex: Female

DRUGS (1)
  1. COPAXONE [Suspect]
     Active Substance: GLATIRAMER ACETATE
     Route: 065
     Dates: start: 2003

REACTIONS (4)
  - Heart rate increased [Unknown]
  - Loss of consciousness [Unknown]
  - Tremor [Unknown]
  - Vertigo [Unknown]

NARRATIVE: CASE EVENT DATE: 202002
